FAERS Safety Report 8517801 (Version 2)
Quarter: 2012Q4

REPORT INFORMATION
  Report Type: 
  Country: US (occurrence: US)
  Receive Date: 20120417
  Receipt Date: 20121022
  Transmission Date: 20130627
  Serious: No
  Sender: FDA-Public Use
  Company Number: US-ASTRAZENECA-2011SE21236

PATIENT
  Age: 55 Year
  Sex: Female

DRUGS (1)
  1. NEXIUM [Suspect]
     Route: 048

REACTIONS (5)
  - Barrett^s oesophagus [Unknown]
  - Complex regional pain syndrome [Unknown]
  - Precancerous mucosal lesion [Unknown]
  - Nasal congestion [Unknown]
  - Multiple allergies [Unknown]
